FAERS Safety Report 10952957 (Version 1)
Quarter: 2015Q1

REPORT INFORMATION
  Report Type: Spontaneous
  Country: US (occurrence: None)
  Receive Date: 20150324
  Receipt Date: 20150324
  Transmission Date: 20150721
  Serious: No
  Sender: FDA-Public Use
  Company Number: None

PATIENT
  Age: 26 Year
  Sex: Female

DRUGS (10)
  1. TRIAMCINOLONE 0.1% CREAM [Concomitant]
  2. PREDNISONE. [Concomitant]
     Active Substance: PREDNISONE
  3. REBIF [Concomitant]
     Active Substance: INTERFERON BETA-1A
  4. TECFIDERA [Suspect]
     Active Substance: DIMETHYL FUMARATE
     Indication: MULTIPLE SCLEROSIS
     Route: 048
     Dates: start: 201311, end: 201408
  5. DIAZEPAM. [Concomitant]
     Active Substance: DIAZEPAM
  6. COPAXONE [Concomitant]
     Active Substance: GLATIRAMER ACETATE
  7. GILENYA [Concomitant]
     Active Substance: FINGOLIMOD HYDROCHLORIDE
  8. VITAMIN D [Concomitant]
     Active Substance: CHOLECALCIFEROL
  9. AMPYRA [Concomitant]
     Active Substance: DALFAMPRIDINE
  10. EXTAVIA [Concomitant]
     Active Substance: INTERFERON BETA-1B

REACTIONS (5)
  - Nausea [None]
  - Quality of life decreased [None]
  - Therapy change [None]
  - Hot flush [None]
  - Incontinence [None]

NARRATIVE: CASE EVENT DATE: 20140909
